FAERS Safety Report 6787561-2 (Version None)
Quarter: 2010Q2

REPORT INFORMATION
  Report Type: 
  Country: None (occurrence: None)
  Receive Date: 20100623
  Receipt Date: 20100617
  Transmission Date: 20101027
  Serious: Yes (Other)
  Sender: FDA-Public Use
  Company Number: US-MERCK-1006USA00309

PATIENT

DRUGS (1)
  1. ZOLINZA [Suspect]
     Indication: NEOPLASM
     Route: 048
     Dates: end: 20100101

REACTIONS (2)
  - DRUG INEFFECTIVE [None]
  - NEOPLASM PROGRESSION [None]
